FAERS Safety Report 18724586 (Version 9)
Quarter: 2024Q2

REPORT INFORMATION
  Report Type: Other
  Country: GB (occurrence: GB)
  Receive Date: 20210111
  Receipt Date: 20240518
  Transmission Date: 20240716
  Serious: Yes (Other)
  Sender: FDA-Public Use
  Company Number: None

PATIENT
  Age: 72 Year
  Sex: Female
  Weight: 62 kg

DRUGS (103)
  1. PREDNISOLONE [Suspect]
     Active Substance: PREDNISOLONE
     Indication: Diffuse large B-cell lymphoma
     Dosage: UNK
     Route: 050
     Dates: start: 20201118, end: 20201122
  2. PREDNISOLONE [Suspect]
     Active Substance: PREDNISOLONE
     Indication: Product used for unknown indication
     Dosage: UNK
     Route: 050
     Dates: start: 20201118, end: 20201122
  3. PREDNISOLONE [Suspect]
     Active Substance: PREDNISOLONE
     Dosage: UNK (DATE OF MOST RECENT DOSE PRIOR TO FIRST EPISODE OF NEUTROPENIA 24/NOV/2020.DATE OF MOST RECENT
     Route: 048
     Dates: start: 20201124
  4. PREDNISOLONE [Suspect]
     Active Substance: PREDNISOLONE
     Dosage: 100 MILLIGRAM, TOTAL INFUSION (DATE OF MOST RECENT DOSE PRIOR TO FIRST EPISODE OF NEUTROPENIA 24/NOV
     Route: 050
     Dates: start: 20201124
  5. PREDNISOLONE [Suspect]
     Active Substance: PREDNISOLONE
     Dosage: 100 MILLIGRAM (DATE OF MOST RECENT DOSE PRIOR TO FIRST EPISODE OF NEUTROPENIA 24/NOV/2020.DATE OF MO
     Route: 048
     Dates: start: 20201124
  6. DOXORUBICIN [Suspect]
     Active Substance: DOXORUBICIN
     Indication: Diffuse large B-cell lymphoma
     Dosage: UNK (INFUSION)
     Route: 042
  7. DOXORUBICIN [Suspect]
     Active Substance: DOXORUBICIN
     Dosage: UNK (INFUSION)
     Route: 042
  8. DOXORUBICIN [Suspect]
     Active Substance: DOXORUBICIN
     Dosage: UNK (INFUSION)
     Route: 042
  9. DOXORUBICIN [Suspect]
     Active Substance: DOXORUBICIN
     Dosage: UNK (INFUSION)
     Route: 042
  10. DOXORUBICIN [Suspect]
     Active Substance: DOXORUBICIN
     Dosage: 50 MILLIGRAM/SQ. METER PER 3 WEEKS, INFUSION ( DATE OF MOST RECENT DOSE PRIOR TO FIRST EPISODE OF NE
     Route: 042
     Dates: start: 20201124
  11. DOXORUBICIN [Suspect]
     Active Substance: DOXORUBICIN
     Dosage: 80 MILLIGRAM/SQ. METER, CYCLICAL PER 3WEEK, INFUSION (ON DAY 1 OF EACH 21-DAY CYCLE DATE OF MOST REC
     Route: 042
     Dates: start: 20201124
  12. DOXORUBICIN [Suspect]
     Active Substance: DOXORUBICIN
     Dosage: UNK (80 MG/M2, EVERY 3 WEEKS, ON DAY 1 OF EACH 21 DAY CYCLE, DATE OF MOST RECENT DOSE PRIOR TO FIRST
     Route: 050
     Dates: start: 20201124
  13. DOXORUBICIN [Suspect]
     Active Substance: DOXORUBICIN
     Dosage: UNK (80 MG/M2, EVERY 3 WEEKS, ON DAY 1 OF EACH 21 DAY CYCLE, DATE OF MOST RECENT DOSE PRIOR TO FIRST
     Route: 050
     Dates: start: 20201124
  14. VALGANCICLOVIR HYDROCHLORIDE [Suspect]
     Active Substance: VALGANCICLOVIR HYDROCHLORIDE
     Indication: Cytomegalovirus viraemia
     Dosage: UNK
     Route: 065
     Dates: start: 20210426, end: 20210513
  15. CYCLOPHOSPHAMIDE [Suspect]
     Active Substance: CYCLOPHOSPHAMIDE
     Indication: Diffuse large B-cell lymphoma
     Dosage: UNK
     Route: 042
  16. CYCLOPHOSPHAMIDE [Suspect]
     Active Substance: CYCLOPHOSPHAMIDE
     Dosage: UNK
     Route: 042
  17. CYCLOPHOSPHAMIDE [Suspect]
     Active Substance: CYCLOPHOSPHAMIDE
     Dosage: UNK
     Route: 042
     Dates: start: 20201124
  18. CYCLOPHOSPHAMIDE [Suspect]
     Active Substance: CYCLOPHOSPHAMIDE
     Dosage: UNK
     Route: 042
  19. CYCLOPHOSPHAMIDE [Suspect]
     Active Substance: CYCLOPHOSPHAMIDE
     Dosage: 3780 MILLIGRAM/SQ. METER PER WEEK (TOTAL VOLUME PRIOR AE 313 MLDATE OF MOST RECENT DOSE PRIOR TO FIR
     Route: 042
     Dates: start: 20201124
  20. CYCLOPHOSPHAMIDE [Suspect]
     Active Substance: CYCLOPHOSPHAMIDE
     Dosage: 1260 MILLIGRAM/SQ. METER (1260 MILLIGRAM/SQ. METER PER 3 WEEK (TOTAL VOLUME PRIOR AE 313 ML DATE OF
     Route: 050
     Dates: start: 20201124
  21. CYCLOPHOSPHAMIDE [Suspect]
     Active Substance: CYCLOPHOSPHAMIDE
     Dosage: 750 MILLIGRAM/SQ. METER (750 MILLIGRAM/SQ. METER PER 3 WEEKS INTERVAL (TOTAL VOLUME PRIOR AE 313 ML
     Route: 042
     Dates: start: 20201124
  22. RITUXIMAB [Suspect]
     Active Substance: RITUXIMAB
     Indication: Diffuse large B-cell lymphoma
     Dosage: 375 MILLIGRAM/SQ. METER IN 3 WEEK INTERVAL ( TOTAL VOLUME PRIOR AE 560 ML  DATE OF MOST RECENT DOSE
     Route: 041
     Dates: start: 20201124
  23. RITUXIMAB [Suspect]
     Active Substance: RITUXIMAB
     Indication: Diffuse large B-cell lymphoma
     Dosage: UNK
     Route: 050
  24. RITUXIMAB [Suspect]
     Active Substance: RITUXIMAB
     Dosage: UNK
     Route: 050
  25. RITUXIMAB [Suspect]
     Active Substance: RITUXIMAB
     Dosage: UNK
     Route: 065
  26. RITUXIMAB [Suspect]
     Active Substance: RITUXIMAB
     Dosage: UNK
     Route: 050
  27. RITUXIMAB [Suspect]
     Active Substance: RITUXIMAB
     Dosage: UNK
     Route: 065
  28. RITUXIMAB [Suspect]
     Active Substance: RITUXIMAB
     Dosage: UNK
     Route: 050
  29. RITUXIMAB [Suspect]
     Active Substance: RITUXIMAB
     Dosage: UNK (3 ML, TIW )
     Route: 050
     Dates: start: 20210216, end: 20210216
  30. RITUXIMAB [Suspect]
     Active Substance: RITUXIMAB
     Dosage: 600 MILLIGRAM/SQ. METER, EVERY 3 WEEKS (TOTAL VOLUME PRIOR AE 560 MLDATE OF MOST RECENT DOSE PRIOR T
     Route: 050
     Dates: start: 20201124
  31. RITUXIMAB [Suspect]
     Active Substance: RITUXIMAB
     Dosage: 9 MILLIMETRE PER WEEK (3 ML, TIW) (CUMULATIVE DOSE TO FIRST REACTION: 34.714287 ML)
     Route: 050
     Dates: start: 20201221, end: 20201221
  32. RITUXIMAB [Suspect]
     Active Substance: RITUXIMAB
     Dosage: 3 ML (DURATION: 1 DAY; TIME INTERVAL: 0.33 WK )
     Route: 050
     Dates: start: 20201221, end: 20201221
  33. RITUXIMAB [Suspect]
     Active Substance: RITUXIMAB
     Dosage: 1800 MILLIGRAM/WEEK (600 MG, TIW) (CUMULATIVE DOSE TO FIRST REACTION:10800.0 MG)
     Route: 050
     Dates: start: 20210105, end: 20210216
  34. RITUXIMAB [Suspect]
     Active Substance: RITUXIMAB
     Dosage: 9 MILLIMETRE PER WEEK (3 ML, TIW) (CUMULATIVE DOSE TO FIRST REACTION: 108.0 ML)
     Route: 050
     Dates: start: 20210216
  35. RITUXIMAB [Suspect]
     Active Substance: RITUXIMAB
     Dosage: 3 ML (DURATION: 1 DAY; TIME INTERVAL: 0.33 WK )
     Route: 050
     Dates: start: 20210216, end: 20210216
  36. RITUXIMAB [Suspect]
     Active Substance: RITUXIMAB
     Dosage: UNK (9 MG/M2, TOTAL VOLUME PRIOR AE 560 MLDATE OF MOST RECENT DOSE PRIOR TO FIRST EPISODE OF NEUTROP
     Route: 050
     Dates: start: 20201124
  37. RITUXIMAB [Suspect]
     Active Substance: RITUXIMAB
     Dosage: 600 MILLIGRAM, TIW
     Route: 050
     Dates: start: 20210105, end: 20210216
  38. RITUXIMAB [Suspect]
     Active Substance: RITUXIMAB
     Dosage: 600 MILLIGRAM, TIW
     Route: 050
     Dates: start: 20210105, end: 20210216
  39. RITUXIMAB [Suspect]
     Active Substance: RITUXIMAB
     Dosage: 3 ML, TIW, TIME INTERVAL: 0.33 WK
     Route: 042
     Dates: start: 20201221, end: 20201221
  40. RITUXIMAB [Suspect]
     Active Substance: RITUXIMAB
     Dosage: UNK (9 MG/M2, TOTAL VOLUME PRIOR AE 560 MLDATE OF MOST RECENT DOSE PRIOR TO FIRST EPISODE OF NEUTROP
     Route: 065
     Dates: start: 20201124
  41. VINCRISTINE [Suspect]
     Active Substance: VINCRISTINE
     Indication: Diffuse large B-cell lymphoma
     Dosage: 1.4 MILLIGRAM/SQ. METER IN 3 WEEK INTERVAL (TOTAL VOLUME: 50 ML DATE OF MOST RECENT DOSE PRIOR TO FI
     Route: 042
     Dates: start: 20201124
  42. VINCRISTINE [Suspect]
     Active Substance: VINCRISTINE
     Indication: Diffuse large B-cell lymphoma
     Dosage: 2 MILLIGRAM/SQ. METER, EVERY 3 WEEKS (TOTAL VOLUME: 50 ML DATE OF MOST RECENT DOSE PRIOR TO FIRST EP
     Route: 050
     Dates: start: 20201124
  43. VINCRISTINE [Suspect]
     Active Substance: VINCRISTINE
     Indication: Diffuse large B-cell lymphoma
     Dosage: UNK
     Route: 065
  44. VINCRISTINE [Suspect]
     Active Substance: VINCRISTINE
     Dosage: UNK
     Route: 050
  45. VINCRISTINE [Suspect]
     Active Substance: VINCRISTINE
     Dosage: UNK
     Route: 065
  46. VINCRISTINE [Suspect]
     Active Substance: VINCRISTINE
     Dosage: UNK
     Route: 050
  47. VINCRISTINE [Suspect]
     Active Substance: VINCRISTINE
     Dosage: 6 MILLIGRAM/SQ. METER PER WEEK (TOTAL VOLUME: 50 MLDATE OF MOST RECENT DOSE PRIOR TO FIRST EPISODE O
     Route: 050
     Dates: start: 20201124
  48. GLOFITAMAB [Suspect]
     Active Substance: GLOFITAMAB
     Indication: Diffuse large B-cell lymphoma
     Dosage: UNK
     Route: 050
  49. GLOFITAMAB [Suspect]
     Active Substance: GLOFITAMAB
     Dosage: UNK
     Route: 050
  50. GLOFITAMAB [Suspect]
     Active Substance: GLOFITAMAB
     Dosage: UNK
     Route: 050
  51. GLOFITAMAB [Suspect]
     Active Substance: GLOFITAMAB
     Dosage: UNK
     Route: 050
  52. GLOFITAMAB [Suspect]
     Active Substance: GLOFITAMAB
     Dosage: 2.5 MILLIGRAM, EVERY 3 WEEKS (THE MOST RECENT DOSE OF RO7082859 (10 MG) WAS ADMINISTERED ON 30/DEC/2
     Route: 050
     Dates: start: 20201222
  53. GLOFITAMAB [Suspect]
     Active Substance: GLOFITAMAB
     Dosage: 2.5 MILLIGRAM, EVERY 3 WEEKS (THE MOST RECENT DOSE OF RO7082859 (10 MG) WAS ADMINISTERED ON 30/DEC/2
     Route: 065
     Dates: start: 20201222
  54. DOXORUBICIN HYDROCHLORIDE [Suspect]
     Active Substance: DOXORUBICIN HYDROCHLORIDE
     Indication: Diffuse large B-cell lymphoma
     Dosage: 150 MILLIGRAM/SQ. METER PER WEEK (50 MG/M2, TIW (DATE OF MOST RECENT DOSE PRIOR TO FIRST EPISODE OF
     Route: 065
     Dates: start: 20201124
  55. DOXORUBICIN HYDROCHLORIDE [Suspect]
     Active Substance: DOXORUBICIN HYDROCHLORIDE
     Dosage: 50 MG/M2 (50 MG/M2, TIW (DATE OF MOST RECENT DOSE PRIOR TO FIRST EPISODE OF NEUTROPENIA (TOTAL VOLUM
     Route: 050
     Dates: start: 20201124
  56. BENDAMUSTINE [Suspect]
     Active Substance: BENDAMUSTINE
     Indication: Product used for unknown indication
     Dosage: UNK
     Route: 065
  57. BENDAMUSTINE [Suspect]
     Active Substance: BENDAMUSTINE
     Dosage: UNK
     Route: 065
  58. FILGRASTIM [Concomitant]
     Active Substance: FILGRASTIM
     Indication: Prophylaxis
     Dosage: UNK
     Route: 050
     Dates: start: 20201129, end: 20201206
  59. FILGRASTIM [Concomitant]
     Active Substance: FILGRASTIM
     Indication: Product used for unknown indication
     Dosage: UNK
     Route: 065
     Dates: start: 20201220
  60. ALLOPURINOL [Concomitant]
     Active Substance: ALLOPURINOL
     Indication: Prophylaxis
     Dosage: UNK
     Route: 050
     Dates: start: 20201118
  61. CHLORPHENIRAMINE MALEATE [Concomitant]
     Active Substance: CHLORPHENIRAMINE MALEATE
     Indication: Prophylaxis
     Dosage: 10 MILLIGRAM, EVERY 3 WEEKS (DOSE LAST STUDY DRUG ADMIN PRIOR AE 1260 MG START AD END DATE OF MOST R
     Route: 050
     Dates: start: 20201124, end: 20201124
  62. CHLORPHENIRAMINE MALEATE [Concomitant]
     Active Substance: CHLORPHENIRAMINE MALEATE
     Indication: Rash maculo-papular
  63. CHLORPHENIRAMINE MALEATE [Concomitant]
     Active Substance: CHLORPHENIRAMINE MALEATE
     Indication: Rash maculo-papular
     Dosage: 10 MILLIGRAM
     Route: 050
     Dates: start: 20210126, end: 20210126
  64. CHLORPHENIRAMINE MALEATE [Concomitant]
     Active Substance: CHLORPHENIRAMINE MALEATE
     Indication: Prophylaxis
  65. CHLORPHENIRAMINE MALEATE [Concomitant]
     Active Substance: CHLORPHENIRAMINE MALEATE
     Indication: Rash maculo-papular
     Dosage: 10 MILLIGRAM
     Route: 050
     Dates: start: 20210302, end: 20210302
  66. CHLORPHENIRAMINE MALEATE [Concomitant]
     Active Substance: CHLORPHENIRAMINE MALEATE
     Indication: Prophylaxis
  67. CHLORPHENIRAMINE MALEATE [Concomitant]
     Active Substance: CHLORPHENIRAMINE MALEATE
     Indication: Rash maculo-papular
     Dosage: UNK
     Route: 050
     Dates: start: 20210323, end: 20210323
  68. CHLORPHENIRAMINE MALEATE [Concomitant]
     Active Substance: CHLORPHENIRAMINE MALEATE
     Indication: Prophylaxis
  69. CHLORPHENIRAMINE MALEATE [Concomitant]
     Active Substance: CHLORPHENIRAMINE MALEATE
     Indication: Rash maculo-papular
     Dosage: 10 MILLIGRAM
     Route: 050
     Dates: start: 20210216, end: 20210216
  70. CHLORPHENIRAMINE MALEATE [Concomitant]
     Active Substance: CHLORPHENIRAMINE MALEATE
     Indication: Prophylaxis
  71. CHLORPHENIRAMINE MALEATE [Concomitant]
     Active Substance: CHLORPHENIRAMINE MALEATE
     Indication: Rash maculo-papular
     Dosage: 10 MILLIGRAM
     Route: 050
     Dates: start: 20210119, end: 20210119
  72. CHLORPHENIRAMINE MALEATE [Concomitant]
     Active Substance: CHLORPHENIRAMINE MALEATE
     Indication: Prophylaxis
  73. CHLORPHENIRAMINE MALEATE [Concomitant]
     Active Substance: CHLORPHENIRAMINE MALEATE
     Indication: Rash maculo-papular
     Dosage: 10 MILLIGRAM
     Route: 050
     Dates: start: 20210309, end: 20210309
  74. CHLORPHENIRAMINE MALEATE [Concomitant]
     Active Substance: CHLORPHENIRAMINE MALEATE
     Indication: Prophylaxis
  75. CHLORPHENIRAMINE MALEATE [Concomitant]
     Active Substance: CHLORPHENIRAMINE MALEATE
     Indication: Rash maculo-papular
     Dosage: UNK
     Route: 065
     Dates: start: 20201217
  76. CHLORPHENIRAMINE MALEATE [Concomitant]
     Active Substance: CHLORPHENIRAMINE MALEATE
     Indication: Prophylaxis
  77. CHLORPHENIRAMINE MALEATE [Concomitant]
     Active Substance: CHLORPHENIRAMINE MALEATE
     Indication: Rash maculo-papular
     Dosage: 10 MILLIGRAM
     Route: 050
     Dates: start: 20210209, end: 20210209
  78. CHLORPHENIRAMINE MALEATE [Concomitant]
     Active Substance: CHLORPHENIRAMINE MALEATE
     Indication: Prophylaxis
  79. CHLORPHENIRAMINE MALEATE [Concomitant]
     Active Substance: CHLORPHENIRAMINE MALEATE
     Indication: Prophylaxis
     Dosage: 10 MILLIGRAM
     Route: 050
     Dates: start: 20201215, end: 20201215
  80. CODEINE [Concomitant]
     Active Substance: CODEINE
     Indication: Pain
     Dosage: 30 MILLIGRAM, PRN (AS NECESSARY)
     Route: 065
     Dates: start: 20201224, end: 20201224
  81. CODEINE [Concomitant]
     Active Substance: CODEINE
     Indication: Pain
     Dosage: UNK
     Route: 065
     Dates: start: 20201123
  82. SARS-CoV-2 vaccine [Concomitant]
     Indication: COVID-19 immunisation
     Dosage: UNK (PFIZER)
     Route: 065
     Dates: start: 20210428, end: 20210428
  83. SARS-CoV-2 vaccine [Concomitant]
     Indication: Product used for unknown indication
     Dosage: UNK
     Route: 065
  84. DEXAMETHASONE [Concomitant]
     Active Substance: DEXAMETHASONE
     Indication: Product used for unknown indication
     Dosage: 20 MILLIGRAM
     Route: 050
     Dates: start: 20210209, end: 20210209
  85. DEXAMETHASONE [Concomitant]
     Active Substance: DEXAMETHASONE
     Indication: Product used for unknown indication
     Dosage: 20 MILLIGRAM
     Route: 050
     Dates: start: 20210302, end: 20210302
  86. DEXAMETHASONE [Concomitant]
     Active Substance: DEXAMETHASONE
     Indication: Product used for unknown indication
     Dosage: 20 MILLIGRAM
     Route: 050
     Dates: start: 20210119, end: 20210119
  87. DEXAMETHASONE [Concomitant]
     Active Substance: DEXAMETHASONE
     Indication: Product used for unknown indication
     Dosage: 20 MILLIGRAM
     Route: 050
     Dates: start: 20210323, end: 20210323
  88. OMEPRAZOLE [Concomitant]
     Active Substance: DONEPEZIL HYDROCHLORIDE\OMEPRAZOLE\OMEPRAZOLE MAGNESIUM
     Indication: Gastrointestinal disorder prophylaxis
     Dosage: UNK
     Route: 065
     Dates: start: 20201118
  89. OMEPRAZOLE [Concomitant]
     Active Substance: DONEPEZIL HYDROCHLORIDE\OMEPRAZOLE\OMEPRAZOLE MAGNESIUM
     Indication: Product used for unknown indication
     Dosage: UNK
     Route: 065
  90. ACETAMINOPHEN [Concomitant]
     Active Substance: ACETAMINOPHEN
     Indication: Prophylaxis
     Dosage: 1000 MILLIGRAM
     Route: 050
     Dates: start: 20201124, end: 20201124
  91. ACETAMINOPHEN [Concomitant]
     Active Substance: ACETAMINOPHEN
     Indication: Product used for unknown indication
     Dosage: 1000 MILLIGRAM
     Route: 050
     Dates: start: 20210119, end: 20210119
  92. ACETAMINOPHEN [Concomitant]
     Active Substance: ACETAMINOPHEN
     Indication: Product used for unknown indication
     Dosage: UNK
     Route: 065
     Dates: start: 20201123, end: 20201123
  93. ACETAMINOPHEN [Concomitant]
     Active Substance: ACETAMINOPHEN
     Indication: Product used for unknown indication
     Dosage: 1000 MILLIGRAM
     Route: 050
     Dates: start: 20210126, end: 20210126
  94. ACETAMINOPHEN [Concomitant]
     Active Substance: ACETAMINOPHEN
     Dosage: 100 MILLIGRAM
     Route: 050
     Dates: start: 20210126, end: 20210126
  95. ACETAMINOPHEN [Concomitant]
     Active Substance: ACETAMINOPHEN
     Indication: Product used for unknown indication
     Dosage: 1000 MILLIGRAM
     Route: 050
     Dates: start: 20210323, end: 20210323
  96. ACETAMINOPHEN [Concomitant]
     Active Substance: ACETAMINOPHEN
     Indication: Product used for unknown indication
     Dosage: 1000 MILLIGRAM
     Route: 050
     Dates: start: 20210302, end: 20210302
  97. ACETAMINOPHEN [Concomitant]
     Active Substance: ACETAMINOPHEN
     Indication: Product used for unknown indication
     Dosage: 1000 MILLIGRAM
     Route: 050
     Dates: start: 20210216, end: 20210216
  98. ACETAMINOPHEN [Concomitant]
     Active Substance: ACETAMINOPHEN
     Indication: Product used for unknown indication
     Dosage: 1000 MILLIGRAM
     Route: 050
     Dates: start: 20210209, end: 20210209
  99. ACETAMINOPHEN [Concomitant]
     Active Substance: ACETAMINOPHEN
     Indication: Product used for unknown indication
     Dosage: 1000 MILLIGRAM
     Route: 050
     Dates: start: 20210309, end: 20210309
  100. ACETAMINOPHEN [Concomitant]
     Active Substance: ACETAMINOPHEN
     Indication: Product used for unknown indication
     Dosage: UNK
     Route: 050
     Dates: start: 20201215, end: 20201215
  101. PREDNISOLONE [Concomitant]
     Active Substance: PREDNISOLONE
     Indication: Product used for unknown indication
     Dosage: UNK
     Route: 065
     Dates: start: 20201118, end: 20201122
  102. SENNA [Concomitant]
     Active Substance: SENNA LEAF\SENNOSIDES\SENNOSIDES A AND B
     Indication: Constipation
     Dosage: UNK
     Route: 050
     Dates: start: 20201124
  103. SENOKOT [Concomitant]
     Active Substance: SENNOSIDES
     Indication: Constipation
     Dosage: UNK (SENNA PODS POWDERED )
     Route: 065

REACTIONS (6)
  - Neutropenia [Recovered/Resolved]
  - Neutropenia [Recovered/Resolved]
  - Neutropenia [Recovered/Resolved]
  - Neutropenia [Recovered/Resolved]
  - Product use in unapproved indication [Unknown]
  - Off label use [Unknown]

NARRATIVE: CASE EVENT DATE: 20201124
